FAERS Safety Report 18701918 (Version 4)
Quarter: 2021Q1

REPORT INFORMATION
  Report Type: Report from Study
  Country: US (occurrence: US)
  Receive Date: 20210105
  Receipt Date: 20210216
  Transmission Date: 20210419
  Serious: Yes (Hospitalization, Other)
  Sender: FDA-Public Use
  Company Number: US-GLAXOSMITHKLINE-US2020GSK228729

PATIENT
  Age: 45 Year
  Sex: Male
  Weight: 104 kg

DRUGS (18)
  1. NIRAPARIB [Suspect]
     Active Substance: NIRAPARIB
     Dosage: 100 MG, QD
     Route: 048
     Dates: start: 20210102, end: 20210106
  2. BACLOFEN TABLET [Concomitant]
     Active Substance: BACLOFEN
     Dosage: 5 TO 10 MG
  3. SODIUM CHLORIDE. [Concomitant]
     Active Substance: SODIUM CHLORIDE
     Dosage: 100 ML/HR
  4. PROCHLORPERAZINE. [Concomitant]
     Active Substance: PROCHLORPERAZINE
     Dosage: 10 MG
  5. OXYCODONE EXTENDED RELEASE [Concomitant]
     Active Substance: OXYCODONE
     Dosage: 10 MG
  6. NIRAPARIB [Suspect]
     Active Substance: NIRAPARIB
     Dosage: 100 MG, QD
     Dates: start: 20201223, end: 20201224
  7. DOSTARLIMAB [Suspect]
     Active Substance: DOSTARLIMAB
     Indication: ADENOCARCINOMA PANCREAS
     Dosage: 500 MG, Z ( 1 IN EVERY 3 WEEKS)
     Route: 042
     Dates: start: 20201105, end: 20201105
  8. OMEPRAZOLE. [Concomitant]
     Active Substance: OMEPRAZOLE
     Dosage: 20 MG
  9. PANCRELIPASE. [Concomitant]
     Active Substance: PANCRELIPASE
     Dosage: 6,000?19,000?30,000 UNIT PER DR CAPSULE 6,000 UNITS OF LIPASE
  10. MIRTAZAPINE. [Concomitant]
     Active Substance: MIRTAZAPINE
     Dosage: 15 MG, Z (NIGHTLY)
  11. SENNA [Concomitant]
     Active Substance: SENNA LEAF\SENNOSIDES\SENNOSIDES A AND B
     Dosage: UNK
  12. NIRAPARIB [Suspect]
     Active Substance: NIRAPARIB
     Indication: ADENOCARCINOMA PANCREAS
     Dosage: 200 MG, QD
     Route: 048
     Dates: start: 20201105, end: 20201116
  13. LORAZEPAM. [Concomitant]
     Active Substance: LORAZEPAM
     Dosage: 0.5 MG
  14. POLYETHYLENE GLYCOL PACKET [Concomitant]
     Dosage: 17 G
  15. DOSTARLIMAB [Suspect]
     Active Substance: DOSTARLIMAB
     Dosage: 500 MG, Z  ( 1 IN EVERY 3 WEEKS)
     Route: 042
     Dates: start: 20201218, end: 20201218
  16. OXYCODONE [Concomitant]
     Active Substance: OXYCODONE
     Dosage: 10 MG, BID
  17. LORAZEPAM INJECTION [Concomitant]
     Active Substance: LORAZEPAM
     Dosage: 0.5 TO 1 MG
  18. PANCRELIPASE. [Concomitant]
     Active Substance: PANCRELIPASE
     Dosage: 24,000?76,000?120,000 UNIT PER DR CAPSULE 48,000 UNITS OF LIPASE

REACTIONS (21)
  - Pain [Unknown]
  - Spinal pain [Unknown]
  - Abdominal pain [Unknown]
  - Biliary sepsis [Unknown]
  - Abdominal pain upper [Unknown]
  - Sinus tachycardia [Recovered/Resolved]
  - Pyrexia [Recovered/Resolved]
  - Vomiting [Unknown]
  - Abdominal pain upper [Unknown]
  - Back pain [Unknown]
  - Nausea [Unknown]
  - Fatigue [Unknown]
  - Sepsis [Unknown]
  - Arthralgia [Unknown]
  - Vomiting [Unknown]
  - Condition aggravated [Unknown]
  - Nausea [Unknown]
  - Pyrexia [Recovered/Resolved]
  - Vomiting [Unknown]
  - Chills [Unknown]
  - Fatigue [Unknown]

NARRATIVE: CASE EVENT DATE: 20201116
